FAERS Safety Report 24686530 (Version 1)
Quarter: 2024Q4

REPORT INFORMATION
  Report Type: Spontaneous
  Country: US (occurrence: US)
  Receive Date: 20241202
  Receipt Date: 20241202
  Transmission Date: 20250115
  Serious: Yes (Hospitalization, Other)
  Sender: ALEMBIC
  Company Number: US-ALEMBIC PHARMACUETICALS LIMITED-2024SCAL001713

PATIENT

DRUGS (2)
  1. METOPROLOL TARTRATE [Suspect]
     Active Substance: METOPROLOL TARTRATE
     Indication: Atrial fibrillation
     Dosage: UNK
     Route: 065
  2. DILTIAZEM HYDROCHLORIDE [Suspect]
     Active Substance: DILTIAZEM HYDROCHLORIDE
     Indication: Atrial fibrillation
     Dosage: UNK
     Route: 065

REACTIONS (7)
  - BRASH syndrome [Recovering/Resolving]
  - Acute kidney injury [Recovering/Resolving]
  - Fatigue [Unknown]
  - Heart rate decreased [Recovering/Resolving]
  - Blood pressure decreased [Unknown]
  - Hyperkalaemia [Recovering/Resolving]
  - Blood creatinine increased [Recovering/Resolving]
